FAERS Safety Report 7412376-1 (Version None)
Quarter: 2011Q2

REPORT INFORMATION
  Report Type: 
  Country: None (occurrence: None)
  Receive Date: 20110405
  Receipt Date: 20110318
  Transmission Date: 20111010
  Serious: Yes (Other)
  Sender: FDA-Public Use
  Company Number: 20110208

PATIENT
  Age: 21 Year
  Sex: Female

DRUGS (1)
  1. DEXAMETHASONE SODIUM PHOSPHATE [Suspect]
     Indication: SWELLING
     Dosage: 8 MG INTRAVENOUS
     Route: 042
     Dates: start: 20110309, end: 20110309

REACTIONS (1)
  - INJECTION SITE THROMBOSIS [None]
